FAERS Safety Report 6105491-6 (Version None)
Quarter: 2009Q1

REPORT INFORMATION
  Report Type: 
  Country: None (occurrence: None)
  Receive Date: 20090306
  Receipt Date: 20090227
  Transmission Date: 20090719
  Serious: Yes (Hospitalization)
  Sender: FDA-Public Use
  Company Number: A0771642A

PATIENT
  Age: 72 Year
  Sex: Male
  Weight: 81.8 kg

DRUGS (9)
  1. AVANDIA [Suspect]
     Indication: DIABETES MELLITUS
     Dosage: 8MG PER DAY
     Route: 048
     Dates: start: 20020110, end: 20070601
  2. LIPITOR [Concomitant]
     Dates: start: 20030101
  3. LASIX [Concomitant]
     Dates: start: 20000101
  4. DIOVAN [Concomitant]
  5. DIAZEPAM [Concomitant]
  6. ZANTAC [Concomitant]
  7. HYDROCODONE BITARTRATE + ACETAMINOPHEN [Concomitant]
  8. ACIPHEX [Concomitant]
  9. HUMULIN R [Concomitant]

REACTIONS (1)
  - MYOCARDIAL INFARCTION [None]
